FAERS Safety Report 5596332-4 (Version None)
Quarter: 2008Q1

REPORT INFORMATION
  Report Type: 
  Country: None (occurrence: None)
  Receive Date: 20080118
  Receipt Date: 20080109
  Transmission Date: 20080703
  Serious: Yes (Hospitalization)
  Sender: FDA-Public Use
  Company Number: JP-MERCK-0801USA02748

PATIENT
  Age: 69 Year
  Sex: Male

DRUGS (2)
  1. PRIMAXIN [Suspect]
     Indication: PROPHYLAXIS
     Route: 065
     Dates: start: 20050101
  2. CEFPIRAMIDE SODIUM [Concomitant]
     Indication: PROPHYLAXIS
     Route: 065
     Dates: start: 20050101

REACTIONS (9)
  - ANAEMIA [None]
  - CANDIDA ENDOPHTHALMITIS [None]
  - CATARACT [None]
  - FUNGAEMIA [None]
  - HEPATIC CIRRHOSIS [None]
  - HEPATORENAL FAILURE [None]
  - RENAL FAILURE [None]
  - URINARY BLADDER HAEMORRHAGE [None]
  - URINARY TRACT INFECTION FUNGAL [None]
